FAERS Safety Report 23887763 (Version 2)
Quarter: 2024Q3

REPORT INFORMATION
  Report Type: Spontaneous
  Country: US (occurrence: None)
  Receive Date: 20240523
  Receipt Date: 20240711
  Transmission Date: 20241017
  Serious: No
  Sender: ASTRAZENECA
  Company Number: 2024A110981

PATIENT
  Sex: Female

DRUGS (1)
  1. BREZTRI [Suspect]
     Active Substance: BUDESONIDE\FORMOTEROL\GLYCOPYRROLATE
     Dosage: 160MCG/9MCG/4.8MCG ;120 INHALATION
     Route: 055

REACTIONS (7)
  - Asthenia [Unknown]
  - Feeling abnormal [Unknown]
  - Panic attack [Unknown]
  - Dyspnoea [Unknown]
  - Anxiety [Unknown]
  - Product dose omission issue [Unknown]
  - Device delivery system issue [Unknown]
